FAERS Safety Report 14552731 (Version 2)
Quarter: 2018Q1

REPORT INFORMATION
  Report Type: Spontaneous
  Country: AT (occurrence: AT)
  Receive Date: 20180220
  Receipt Date: 20180315
  Transmission Date: 20180509
  Serious: Yes (Hospitalization, Other)
  Sender: FDA-Public Use
  Company Number: AT-BAYER-2018-029394

PATIENT
  Age: 57 Year
  Sex: Male

DRUGS (2)
  1. DENOSUMAB [Concomitant]
     Active Substance: DENOSUMAB
     Indication: METASTASES TO BONE
     Dosage: 120 MG, Q1MON
     Dates: start: 201407
  2. XOFIGO [Suspect]
     Active Substance: RADIUM RA-223 DICHLORIDE
     Indication: PROSTATE CANCER METASTATIC
     Dosage: 4 CYCLES
     Dates: start: 201606, end: 201609

REACTIONS (6)
  - Thrombocytopenia [None]
  - Infection [None]
  - Liver function test increased [None]
  - Prostate cancer stage IV [None]
  - Performance status decreased [None]
  - Anaemia [None]
